FAERS Safety Report 7075376-X (Version None)
Quarter: 2010Q4

REPORT INFORMATION
  Report Type: 
  Country: None (occurrence: None)
  Receive Date: 20101030
  Receipt Date: 20100903
  Transmission Date: 20110411
  Serious: No
  Sender: FDA-Public Use
  Company Number: US-WYE-H17289410

PATIENT
  Age: 46 Year
  Sex: Female
  Weight: 70.37 kg

DRUGS (4)
  1. ALAVERT [Suspect]
     Indication: EYE PRURITUS
     Route: 048
     Dates: start: 20100827
  2. ALAVERT [Suspect]
     Indication: LACRIMATION INCREASED
  3. ALAVERT [Suspect]
     Indication: THROAT IRRITATION
  4. ALAVERT [Suspect]
     Indication: SNEEZING

REACTIONS (1)
  - DRUG INEFFECTIVE [None]
